FAERS Safety Report 9295521 (Version 2)
Quarter: 2013Q2

REPORT INFORMATION
  Report Type: Spontaneous
  Country: US (occurrence: US)
  Receive Date: 20130517
  Receipt Date: 20130523
  Transmission Date: 20140414
  Serious: No
  Sender: FDA-Public Use
  Company Number: US-TEVA-405740USA

PATIENT
  Sex: Female

DRUGS (8)
  1. PROAIR HFA [Suspect]
     Route: 055
  2. LEVAQUIN [Concomitant]
  3. PHENERGAN DM [Concomitant]
  4. FLONASE [Concomitant]
  5. LIPITOR [Concomitant]
  6. ALLEGRA [Concomitant]
  7. HYDROCHLOROTHIAZIDE [Concomitant]
     Indication: BLOOD PRESSURE
  8. ADVAIR [Concomitant]
     Dosage: 250/50

REACTIONS (1)
  - Dyspnoea [Unknown]
